FAERS Safety Report 8227871-5 (Version None)
Quarter: 2012Q1

REPORT INFORMATION
  Report Type: 
  Country: None (occurrence: None)
  Receive Date: 20120307
  Receipt Date: 20100503
  Transmission Date: 20120608
  Serious: Yes (Other)
  Sender: FDA-Public Use
  Company Number: PHHY2010US26387

PATIENT
  Age: 58 Year
  Sex: Female
  Weight: 76 kg

DRUGS (5)
  1. ALLEGRA [Concomitant]
  2. XANAX [Concomitant]
  3. SIMVASTATIN [Concomitant]
  4. ZOLOFT [Concomitant]
  5. AFINITOR [Suspect]
     Indication: NEUROENDOCRINE CARCINOMA
     Dosage: 10 MG, QD, ORAL
     Route: 048
     Dates: start: 20091001, end: 20100410

REACTIONS (6)
  - COUGH [None]
  - CHEST X-RAY ABNORMAL [None]
  - SPUTUM DISCOLOURED [None]
  - TRAUMATIC LUNG INJURY [None]
  - PULMONARY TOXICITY [None]
  - ORGANISING PNEUMONIA [None]
